FAERS Safety Report 18900020 (Version 7)
Quarter: 2021Q4

REPORT INFORMATION
  Report Type: Spontaneous
  Country: US (occurrence: US)
  Receive Date: 20210216
  Receipt Date: 20211116
  Transmission Date: 20220304
  Serious: Yes (Death, Hospitalization)
  Sender: FDA-Public Use
  Company Number: US-CELGENE-USA-20210202572

PATIENT
  Sex: Female

DRUGS (3)
  1. THALOMID [Suspect]
     Active Substance: THALIDOMIDE
     Indication: Gastrointestinal angiodysplasia
     Dosage: 50 MILLIGRAM
     Route: 048
     Dates: start: 201903
  2. THALOMID [Suspect]
     Active Substance: THALIDOMIDE
     Indication: Off label use
     Dosage: 50 MILLIGRAM
     Route: 048
     Dates: start: 202006
  3. THALOMID [Suspect]
     Active Substance: THALIDOMIDE
     Dosage: 50 MILLIGRAM
     Route: 048
     Dates: start: 20200116, end: 20210810

REACTIONS (3)
  - COVID-19 [Fatal]
  - Cardiac failure congestive [Fatal]
  - Cardiac failure [Fatal]

NARRATIVE: CASE EVENT DATE: 20190101
